FAERS Safety Report 13020195 (Version 1)
Quarter: 2016Q4

REPORT INFORMATION
  Report Type: Spontaneous
  Country: SE (occurrence: SE)
  Receive Date: 20161212
  Receipt Date: 20161212
  Transmission Date: 20170207
  Serious: Yes (Hospitalization)
  Sender: FDA-Public Use
  Company Number: SE-TEVA-716520ACC

PATIENT
  Age: 50 Year
  Sex: Female
  Weight: 47 kg

DRUGS (5)
  1. STESOLID [Suspect]
     Active Substance: DIAZEPAM
     Dosage: ^ 5 ST^
     Dates: start: 20150707, end: 20150707
  2. LYRICA [Suspect]
     Active Substance: PREGABALIN
     Dosage: ^ 6 ST^
     Dates: start: 20150707, end: 20150707
  3. ALVEDON [Suspect]
     Active Substance: ACETAMINOPHEN
     Dosage: ^20 ST^
     Dates: start: 20150707, end: 20150707
  4. ZOLPIDEM [Suspect]
     Active Substance: ZOLPIDEM\ZOLPIDEM TARTRATE
     Dosage: ^ 5 ST^
     Dates: start: 20150707, end: 20150707
  5. ALVEDON 665 MG TABLET MED MODIFIED-RELEASE [Suspect]
     Active Substance: ACETAMINOPHEN
     Dosage: ^20-25 ST^
     Dates: start: 20150707, end: 20150707

REACTIONS (4)
  - Toxicity to various agents [Recovered/Resolved]
  - Intentional self-injury [Recovered/Resolved]
  - Overdose [Recovered/Resolved]
  - Analgesic drug level increased [Unknown]

NARRATIVE: CASE EVENT DATE: 20150707
